FAERS Safety Report 23323850 (Version 2)
Quarter: 2025Q2

REPORT INFORMATION
  Report Type: Spontaneous
  Country: GB (occurrence: GB)
  Receive Date: 20231221
  Receipt Date: 20250430
  Transmission Date: 20250716
  Serious: Yes (Life-Threatening, Hospitalization, Other)
  Sender: JUBILANT
  Company Number: None

PATIENT
  Sex: Female

DRUGS (6)
  1. LAMOTRIGINE [Interacting]
     Active Substance: LAMOTRIGINE
     Indication: Product used for unknown indication
  2. LAMOTRIGINE [Interacting]
     Active Substance: LAMOTRIGINE
  3. ATOMOXETINE [Interacting]
     Active Substance: ATOMOXETINE
     Indication: Product used for unknown indication
  4. RISPERIDONE [Concomitant]
     Active Substance: RISPERIDONE
     Indication: Product used for unknown indication
  5. METHYLPHENIDATE [Concomitant]
     Active Substance: METHYLPHENIDATE
     Indication: Product used for unknown indication
  6. MELATONIN [Concomitant]
     Active Substance: MELATONIN
     Indication: Product used for unknown indication

REACTIONS (7)
  - Hypertension [Recovered/Resolved]
  - Hepatic encephalopathy [Recovered/Resolved]
  - Drug-induced liver injury [Recovered/Resolved]
  - Hepatic necrosis [Recovered/Resolved]
  - Intracranial pressure increased [Recovered/Resolved]
  - Acute hepatic failure [Recovered/Resolved]
  - Drug interaction [Recovered/Resolved]
